FAERS Safety Report 15133080 (Version 2)
Quarter: 2018Q3

REPORT INFORMATION
  Report Type: Spontaneous
  Country: ES (occurrence: ES)
  Receive Date: 20180712
  Receipt Date: 20180716
  Transmission Date: 20181010
  Serious: Yes (Hospitalization, Other)
  Sender: FDA-Public Use
  Company Number: ES-AUROBINDO-AUR-APL-2018-035480

PATIENT
  Age: 36 Year
  Sex: Male

DRUGS (4)
  1. LINEZOLID. [Suspect]
     Active Substance: LINEZOLID
     Indication: TUBERCULOSIS
     Dosage: FROM 24 TO 28. REINTRODUCE ON 11/12
     Route: 065
     Dates: start: 20171124, end: 20171128
  2. CLOFAZIMINA [Suspect]
     Active Substance: CLOFAZIMINE
     Indication: TUBERCULOSIS
     Dosage: DEL 24 AL 28. REINICIA EL 14/12 ()
     Route: 065
     Dates: start: 20171124, end: 20171128
  3. MEROPENEM. [Suspect]
     Active Substance: MEROPENEM
     Indication: TUBERCULOSIS
     Dosage: FROM 24 TO 28. REINTRODUCE ON 4/12 AND SUSPEND FOR INCREASE OF TRANSAMINASES
     Route: 065
     Dates: start: 20171124, end: 20171128
  4. AMOXICILLIN+CLAVULANIC ACID [Suspect]
     Active Substance: AMOXICILLIN\CLAVULANIC ACID
     Indication: TUBERCULOSIS
     Dosage: FROM 24 TO 28. REINTRODUCE ON 4/12 AND SUSPEND FOR INCREASE OF TRANSAMINASES
     Route: 065
     Dates: start: 20171124, end: 20171128

REACTIONS (1)
  - Hepatitis cholestatic [Recovered/Resolved]

NARRATIVE: CASE EVENT DATE: 20171128
